FAERS Safety Report 6472860-4 (Version None)
Quarter: 2009Q4

REPORT INFORMATION
  Report Type: 
  Country: None (occurrence: None)
  Receive Date: 20091203
  Receipt Date: 20081217
  Transmission Date: 20100525
  Serious: No
  Sender: FDA-Public Use
  Company Number: US-AMGEN-KDL324509

PATIENT
  Sex: Male

DRUGS (1)
  1. ENBREL [Suspect]
     Indication: PSORIATIC ARTHROPATHY
     Route: 058
     Dates: start: 20071214, end: 20081126

REACTIONS (5)
  - INTERVERTEBRAL DISC PROTRUSION [None]
  - LYMPH GLAND INFECTION [None]
  - LYMPHADENOPATHY [None]
  - PSORIASIS [None]
  - WHEEZING [None]
